FAERS Safety Report 5695914-9 (Version None)
Quarter: 2008Q2

REPORT INFORMATION
  Report Type: 
  Country: None (occurrence: None)
  Receive Date: 20080407
  Receipt Date: 20080404
  Transmission Date: 20081010
  Serious: Yes (Other)
  Sender: FDA-Public Use
  Company Number: A0663202A

PATIENT
  Age: 55 Year
  Sex: Female
  Weight: 96.1 kg

DRUGS (4)
  1. ALLI [Suspect]
     Indication: WEIGHT LOSS DIET
     Route: 048
     Dates: start: 20070707, end: 20070709
  2. SYNTHROID [Concomitant]
  3. WELLBUTRIN [Concomitant]
  4. BLOOD PRESSURE MEDICATION [Concomitant]

REACTIONS (7)
  - DEHYDRATION [None]
  - DIARRHOEA [None]
  - GASTROINTESTINAL HAEMORRHAGE [None]
  - HYPOTENSION [None]
  - RECTAL HAEMORRHAGE [None]
  - SHIFT TO THE LEFT [None]
  - WHITE BLOOD CELL COUNT INCREASED [None]
